FAERS Safety Report 13962917 (Version 1)
Quarter: 2017Q3

REPORT INFORMATION
  Report Type: Spontaneous
  Country: GB (occurrence: GB)
  Receive Date: 20170913
  Receipt Date: 20170913
  Transmission Date: 20171128
  Serious: Yes (Other)
  Sender: FDA-Public Use
  Company Number: GB-ACCORD-058247

PATIENT
  Age: 68 Year
  Sex: Female

DRUGS (8)
  1. DAKTARIN [Concomitant]
     Active Substance: MICONAZOLE NITRATE
  2. FLUCONAZOLE. [Concomitant]
     Active Substance: FLUCONAZOLE
  3. LERCANIDIPINE [Concomitant]
     Active Substance: LERCANIDIPINE
  4. RAMIPRIL. [Suspect]
     Active Substance: RAMIPRIL
     Indication: PRODUCT USED FOR UNKNOWN INDICATION
     Dates: start: 201312, end: 201512
  5. BRISTOL LABS RAMIPRIL [Suspect]
     Active Substance: RAMIPRIL
     Indication: CARDIAC FAILURE
     Route: 048
     Dates: start: 20151211, end: 20151212
  6. VESICARE [Concomitant]
     Active Substance: SOLIFENACIN SUCCINATE
  7. RAMIPRIL. [Suspect]
     Active Substance: RAMIPRIL
     Dates: start: 201312, end: 201512
  8. SOLIFENACIN/SOLIFENACIN SUCCINATE [Suspect]
     Active Substance: SOLIFENACIN SUCCINATE
     Indication: PRODUCT USED FOR UNKNOWN INDICATION

REACTIONS (2)
  - Dry throat [Recovered/Resolved]
  - Dysphagia [Recovered/Resolved]

NARRATIVE: CASE EVENT DATE: 20151211
